FAERS Safety Report 11765315 (Version 2)
Quarter: 2015Q4

REPORT INFORMATION
  Report Type: Spontaneous
  Country: DE (occurrence: DE)
  Receive Date: 20151121
  Receipt Date: 20151208
  Transmission Date: 20160304
  Serious: Yes (Hospitalization)
  Sender: FDA-Public Use
  Company Number: DE-AUROBINDO-AUR-APL-2015-10726

PATIENT
  Age: 77 Year
  Sex: Female

DRUGS (1)
  1. ALENDRONIC ACID [Suspect]
     Active Substance: ALENDRONIC ACID
     Indication: OSTEOPOROSIS POSTMENOPAUSAL
     Route: 065

REACTIONS (8)
  - Stress fracture [Recovered/Resolved]
  - Fall [Recovered/Resolved]
  - Hypophosphataemia [Recovered/Resolved]
  - Blood 25-hydroxycholecalciferol decreased [Recovered/Resolved]
  - Atypical femur fracture [Recovered/Resolved]
  - Hypocalcaemia [Recovered/Resolved]
  - Pain in extremity [Recovered/Resolved]
  - Blood creatinine increased [Recovered/Resolved]
